FAERS Safety Report 5263438-9 (Version None)
Quarter: 2007Q1

REPORT INFORMATION
  Report Type: 
  Country: None (occurrence: None)
  Receive Date: 20070313
  Receipt Date: 20070305
  Transmission Date: 20070707
  Serious: Yes (Hospitalization)
  Sender: FDA-Public Use
  Company Number: FRWYE769307DEC06

PATIENT
  Sex: Female
  Weight: 68 kg

DRUGS (8)
  1. EFFEXOR [Suspect]
     Indication: DEPRESSION
     Dosage: 50 MG TOTAL DAILY
     Route: 048
     Dates: start: 20061120, end: 20061204
  2. SECTRAL [Concomitant]
     Indication: MYOCARDIAL INFARCTION
     Route: 048
     Dates: start: 19980101
  3. DOLIPRANE [Concomitant]
     Dosage: UNKNOWN; ON REQUEST
     Route: 048
  4. VASTAREL [Concomitant]
     Indication: MYOCARDIAL INFARCTION
     Dosage: UNKNOWN
     Route: 048
     Dates: start: 19980101
  5. LEXOMIL [Suspect]
     Indication: ANXIETY
     Dosage: UNKNOWN
     Route: 048
     Dates: end: 20061120
  6. SPECIAFOLDINE [Concomitant]
     Route: 048
  7. LEVOTHYROXINE SODIUM [Concomitant]
     Route: 048
  8. KARDEGIC [Concomitant]
     Indication: MYOCARDIAL INFARCTION
     Route: 048
     Dates: start: 19980101

REACTIONS (4)
  - CONFUSIONAL STATE [None]
  - DEMENTIA ALZHEIMER'S TYPE [None]
  - HYPONATRAEMIA [None]
  - VASCULAR DEMENTIA [None]
